FAERS Safety Report 24947014 (Version 2)
Quarter: 2025Q1

REPORT INFORMATION
  Report Type: Spontaneous
  Country: US (occurrence: US)
  Receive Date: 20250210
  Receipt Date: 20250210
  Transmission Date: 20250409
  Serious: No
  Sender: BOEHRINGER INGELHEIM
  Company Number: US-Komodo Health-a23aa000005ghtiAAA

PATIENT
  Age: 63 Year
  Sex: Female

DRUGS (1)
  1. MICARDIS HCT [Suspect]
     Active Substance: HYDROCHLOROTHIAZIDE\TELMISARTAN
     Indication: Hypertension
     Dosage: 40MG/12.5MG ONE A DAY
     Dates: start: 2009

REACTIONS (6)
  - Blood pressure increased [Recovered/Resolved]
  - Joint swelling [Recovering/Resolving]
  - Peripheral swelling [Recovering/Resolving]
  - Arthralgia [Recovering/Resolving]
  - Gait inability [Unknown]
  - Drug ineffective [Unknown]

NARRATIVE: CASE EVENT DATE: 20170101
